FAERS Safety Report 7927048-4 (Version None)
Quarter: 2011Q4

REPORT INFORMATION
  Report Type: 
  Country: None (occurrence: None)
  Receive Date: 20111118
  Receipt Date: 20111111
  Transmission Date: 20120403
  Serious: Yes (Hospitalization)
  Sender: FDA-Public Use
  Company Number: US-JNJFOC-20111105746

PATIENT
  Sex: Male
  Weight: 74.84 kg

DRUGS (1)
  1. DURAGESIC-100 [Suspect]
     Indication: PAIN
     Route: 062
     Dates: start: 20000101, end: 20101101

REACTIONS (2)
  - BREAST CANCER [None]
  - INTERVERTEBRAL DISC PROTRUSION [None]
